FAERS Safety Report 4629457-8 (Version None)
Quarter: 2005Q2

REPORT INFORMATION
  Report Type: 
  Country: None (occurrence: None)
  Receive Date: 20050405
  Receipt Date: 20050324
  Transmission Date: 20051028
  Serious: Yes (Other)
  Sender: FDA-Public Use
  Company Number: 310002M05FRA

PATIENT
  Age: 35 Year
  Sex: Female
  Weight: 40 kg

DRUGS (3)
  1. GONAL-F [Suspect]
     Indication: IN VITRO FERTILISATION
     Dosage: SUBCUTANEOUS
     Route: 058
     Dates: start: 20040201
  2. MENOTROPINS [Concomitant]
  3. GONADORELIN INJ [Concomitant]

REACTIONS (8)
  - AMYOTROPHIC LATERAL SCLEROSIS [None]
  - ASTHENIA [None]
  - CEREBELLAR SYNDROME [None]
  - MALAISE [None]
  - MUSCLE SPASTICITY [None]
  - PYRAMIDAL TRACT SYNDROME [None]
  - THERAPY NON-RESPONDER [None]
  - WEIGHT DECREASED [None]
